FAERS Safety Report 7605064-X (Version None)
Quarter: 2011Q3

REPORT INFORMATION
  Report Type: 
  Country: None (occurrence: None)
  Receive Date: 20110713
  Receipt Date: 20081205
  Transmission Date: 20111222
  Serious: Yes (Hospitalization, Other)
  Sender: FDA-Public Use
  Company Number: US-BAYER-200839695NA

PATIENT
  Age: 73 Year
  Sex: Male
  Weight: 90.703 kg

DRUGS (19)
  1. ATIVAN [Concomitant]
     Dosage: 2 MG, TOTAL
     Route: 042
     Dates: start: 20060707, end: 20060707
  2. PHENYLEPHRINE HCL [Concomitant]
     Dosage: UNK
     Route: 042
     Dates: start: 20060707
  3. DOPAMINE HCL [Concomitant]
     Dosage: UNK
     Route: 042
     Dates: start: 20060707
  4. PROPOFOL [Concomitant]
     Dosage: 100 ML, TOTAL
     Route: 042
     Dates: start: 20060707, end: 20060707
  5. CONTRAST MEDIA [Concomitant]
     Indication: CATHETERISATION CARDIAC
     Dosage: UNK
     Dates: start: 20060705
  6. HEPARIN [Concomitant]
     Dosage: 2000 UNITS/1000 ML SODIUM CHLORIDE
     Route: 061
     Dates: start: 20060707, end: 20060707
  7. ACETYLSALICYLIC ACID SRT [Concomitant]
     Dosage: 81 MG, QD
     Route: 048
  8. FORANE [Concomitant]
     Dosage: UNK
     Dates: start: 20060707, end: 20060707
  9. TRASYLOL [Suspect]
     Indication: PRODUCT USED FOR UNKNOWN INDICATION
     Dosage: 200 ML, ONCE, LOADING DOSE
     Route: 042
     Dates: start: 20060707, end: 20060707
  10. NIASPAN [Concomitant]
     Dosage: 1000 MG, BID
     Route: 048
  11. PLAVIX [Concomitant]
     Dosage: 75 MG, QD
     Route: 048
  12. ISOSORBIDE DINITRATE [Concomitant]
     Dosage: 30 MG, QD
     Route: 048
     Dates: start: 20060626
  13. CEFAZOLIN [Concomitant]
     Dosage: 2 G
     Route: 042
     Dates: start: 20060707, end: 20060707
  14. HEPARIN [Concomitant]
     Dosage: 12000 U
     Route: 042
     Dates: start: 20060707, end: 20060707
  15. CRESTOR [Concomitant]
     Dosage: 20 MG, QD
     Route: 048
  16. ZETIA [Concomitant]
     Dosage: 10 MG, QD
     Route: 048
  17. TOPROL-XL [Concomitant]
     Dosage: 50 MG, QD
     Route: 048
     Dates: start: 20060626
  18. SAW PALMETTO [Concomitant]
     Dosage: 320 MG, QD
     Route: 048
  19. VECURONIUM BROMIDE [Concomitant]
     Dosage: 30 MG, TOTAL
     Route: 042
     Dates: start: 20060707, end: 20060707

REACTIONS (15)
  - RENAL FAILURE [None]
  - CONVULSION [None]
  - UNEVALUABLE EVENT [None]
  - FEAR [None]
  - RENAL IMPAIRMENT [None]
  - ANHEDONIA [None]
  - STRESS [None]
  - ANXIETY [None]
  - MULTI-ORGAN FAILURE [None]
  - EMOTIONAL DISTRESS [None]
  - INJURY [None]
  - RENAL INJURY [None]
  - CEREBROVASCULAR ACCIDENT [None]
  - SCOTOMA [None]
  - PAIN [None]
